FAERS Safety Report 9172150 (Version 1)
Quarter: 2013Q1

REPORT INFORMATION
  Report Type: Spontaneous
  Country: FR (occurrence: FR)
  Receive Date: 20130319
  Receipt Date: 20130319
  Transmission Date: 20140127
  Serious: Yes (Hospitalization)
  Sender: FDA-Public Use
  Company Number: FR-BRISTOL-MYERS SQUIBB COMPANY-17477118

PATIENT
  Age: 82 Year
  Sex: Female

DRUGS (10)
  1. APROVEL [Suspect]
     Dates: start: 20121121, end: 20130108
  2. ZYLORIC [Suspect]
     Dates: start: 20121217, end: 20130106
  3. COSOPT [Concomitant]
     Dosage: 1 DF=1 DROP
  4. GANFORT [Concomitant]
     Dosage: 1 DF:1 DROP
  5. BISOPROLOL [Concomitant]
  6. PREVISCAN [Concomitant]
     Dosage: 1 DF:1/4TH OF 20 UNITS NOS TABS
  7. LASILIX [Concomitant]
  8. ALDACTONE [Concomitant]
  9. ATARAX [Concomitant]
  10. LEXOMIL [Concomitant]

REACTIONS (1)
  - Drug reaction with eosinophilia and systemic symptoms [Recovered/Resolved]
